FAERS Safety Report 11680777 (Version 2)
Quarter: 2015Q4

REPORT INFORMATION
  Report Type: Spontaneous
  Country: US (occurrence: US)
  Receive Date: 20151027
  Receipt Date: 20151104
  Transmission Date: 20160304
  Serious: No
  Sender: FDA-Public Use
  Company Number: US-ELI_LILLY_AND_COMPANY-US201010005147

PATIENT
  Age: 63 Year
  Sex: Female

DRUGS (1)
  1. FORTEO [Suspect]
     Active Substance: TERIPARATIDE
     Dosage: UNK, UNKNOWN

REACTIONS (5)
  - Injection site pain [Unknown]
  - Blood calcium increased [Not Recovered/Not Resolved]
  - Foot fracture [Unknown]
  - Gout [Unknown]
  - Malaise [Unknown]

NARRATIVE: CASE EVENT DATE: 20110503
